FAERS Safety Report 7771915-1 (Version None)
Quarter: 2011Q3

REPORT INFORMATION
  Report Type: 
  Country: None (occurrence: None)
  Receive Date: 20110922
  Receipt Date: 20100818
  Transmission Date: 20111222
  Serious: Yes (Hospitalization)
  Sender: FDA-Public Use
  Company Number: US-ASTRAZENECA-2010SE38859

PATIENT
  Age: 702 Month
  Sex: Female

DRUGS (6)
  1. CYCLOPHOSPHAMIDE [Concomitant]
  2. VICODAN [Concomitant]
  3. SEROQUEL XR [Suspect]
     Indication: DEPRESSION
     Route: 048
     Dates: start: 20100701
  4. ATIVAN [Concomitant]
     Dosage: TWO TIMES A DAY.
  5. SEROQUEL XR [Suspect]
     Route: 048
  6. ZOLPIDEM [Concomitant]

REACTIONS (4)
  - INCORRECT DOSE ADMINISTERED [None]
  - SLEEP TALKING [None]
  - SOMNAMBULISM [None]
  - BLOOD PRESSURE DECREASED [None]
